FAERS Safety Report 4380437-X (Version None)
Quarter: 2004Q2

REPORT INFORMATION
  Report Type: 
  Country: None (occurrence: None)
  Receive Date: 20040616
  Receipt Date: 20040610
  Transmission Date: 20050107
  Serious: No
  Sender: FDA-Public Use
  Company Number: 2004PK01013

PATIENT
  Age: 24 Year
  Sex: Male

DRUGS (1)
  1. ROSUVASTATIN [Suspect]
     Indication: HYPERCHOLESTEROLAEMIA
     Dosage: 10 MG QD PO
     Route: 048
     Dates: start: 20030919, end: 20040424

REACTIONS (6)
  - ALANINE AMINOTRANSFERASE INCREASED [None]
  - ASPARTATE AMINOTRANSFERASE INCREASED [None]
  - BILIARY DILATATION [None]
  - HEPATIC ENZYME INCREASED [None]
  - JAUNDICE [None]
  - PANCREATIC CYST [None]
